FAERS Safety Report 8450888-2 (Version None)
Quarter: 2012Q2

REPORT INFORMATION
  Report Type: 
  Country: None (occurrence: None)
  Receive Date: 20120620
  Receipt Date: 20120611
  Transmission Date: 20120825
  Serious: Yes (Hospitalization)
  Sender: FDA-Public Use
  Company Number: US-JNJFOC-20120605362

PATIENT
  Sex: Female
  Weight: 58.97 kg

DRUGS (1)
  1. REMICADE [Suspect]
     Indication: CROHN'S DISEASE
     Route: 042
     Dates: start: 20110301, end: 20120501

REACTIONS (6)
  - THERAPEUTIC RESPONSE DECREASED [None]
  - PAIN [None]
  - DIARRHOEA [None]
  - MALAISE [None]
  - ABNORMAL LOSS OF WEIGHT [None]
  - TENDERNESS [None]
